FAERS Safety Report 4282897-1 (Version None)
Quarter: 2004Q1

REPORT INFORMATION
  Report Type: 
  Country: None (occurrence: None)
  Receive Date: 20040130
  Receipt Date: 20031008
  Transmission Date: 20041129
  Serious: Yes (Other)
  Sender: FDA-Public Use
  Company Number: US-BRISTOL-MYERS SQUIBB COMPANY-12406203

PATIENT
  Sex: Male

DRUGS (1)
  1. SERZONE [Suspect]
     Route: 048
     Dates: start: 19960320, end: 19960508

REACTIONS (1)
  - HEPATITIS [None]
